FAERS Safety Report 11326436 (Version 1)
Quarter: 2015Q3

REPORT INFORMATION
  Report Type: Spontaneous
  Country: DE (occurrence: None)
  Receive Date: 20150729
  Receipt Date: 20150729
  Transmission Date: 20151125
  Serious: Yes (Life-Threatening, Hospitalization)
  Sender: FDA-Public Use
  Company Number: DE-2015-3162

PATIENT
  Age: 64 Year
  Sex: Male
  Weight: 125 kg

DRUGS (1)
  1. VINORELBINE INN (VINORELBINE TARTRATE) SOLUTION FOR INJECTION [Suspect]
     Active Substance: VINORELBINE TARTRATE
     Route: 042
     Dates: start: 20150623, end: 20150630

REACTIONS (2)
  - Generalised tonic-clonic seizure [None]
  - Gamma-glutamyltransferase increased [None]

NARRATIVE: CASE EVENT DATE: 20150630
